FAERS Safety Report 17256755 (Version 1)
Quarter: 2020Q1

REPORT INFORMATION
  Report Type: Spontaneous
  Country: US (occurrence: US)
  Receive Date: 20200110
  Receipt Date: 20200110
  Transmission Date: 20200409
  Serious: Yes (Hospitalization)
  Sender: FDA-Public Use
  Company Number: US-VERTEX PHARMACEUTICALS-2020-000102

PATIENT
  Age: 7 Year
  Sex: Male

DRUGS (1)
  1. SYMDEKO [Suspect]
     Active Substance: IVACAFTOR\TEZACAFTOR
     Indication: CYSTIC FIBROSIS
     Dosage: TEZACAFTOR 50MG/ IVACAFTOOR 75MG AM; IVACAFTOR 75MG PM
     Route: 048
     Dates: start: 20190701

REACTIONS (3)
  - Pneumonia staphylococcal [Unknown]
  - Pneumonia pseudomonal [Unknown]
  - Infective pulmonary exacerbation of cystic fibrosis [Unknown]

NARRATIVE: CASE EVENT DATE: 20191216
